FAERS Safety Report 25721349 (Version 1)
Quarter: 2025Q3

REPORT INFORMATION
  Report Type: Spontaneous
  Country: US (occurrence: None)
  Receive Date: 20250822
  Receipt Date: 20250822
  Transmission Date: 20251021
  Serious: Yes (Disabling, Other)
  Sender: FDA-CTU
  Company Number: None

PATIENT
  Age: 40 Year
  Sex: Female
  Weight: 56.25 kg

DRUGS (3)
  1. GABAPENTIN [Suspect]
     Active Substance: GABAPENTIN
  2. AMITRIPTYLINE [Suspect]
     Active Substance: AMITRIPTYLINE
  3. PREGABALIN [Suspect]
     Active Substance: PREGABALIN

REACTIONS (13)
  - Fatigue [None]
  - Gastrointestinal disorder [None]
  - Somnolence [None]
  - Suicidal ideation [None]
  - Spinal meningeal cyst [None]
  - Iatrogenic injury [None]
  - Post procedural complication [None]
  - Inadequate analgesia [None]
  - Procedural failure [None]
  - Pain [None]
  - Product prescribing issue [None]
  - Drug ineffective [None]
  - Paradoxical drug reaction [None]

NARRATIVE: CASE EVENT DATE: 20210101
